FAERS Safety Report 9877419 (Version 1)
Quarter: 2014Q1

REPORT INFORMATION
  Report Type: Spontaneous
  Country: GB (occurrence: GB)
  Receive Date: 20140206
  Receipt Date: 20140206
  Transmission Date: 20141002
  Serious: Yes (Death, Other)
  Sender: FDA-Public Use
  Company Number: GB-PFIZER INC-2014029834

PATIENT
  Age: 18 Year
  Sex: Male

DRUGS (1)
  1. DOXYCYCLINE HYCLATE [Suspect]
     Indication: ACNE
     Dosage: 100 MG, UNK
     Dates: start: 201202

REACTIONS (3)
  - Completed suicide [Fatal]
  - Depressed mood [Unknown]
  - Drug dispensing error [Unknown]
